FAERS Safety Report 19965956 (Version 2)
Quarter: 2021Q4

REPORT INFORMATION
  Report Type: Spontaneous
  Country: FR (occurrence: FR)
  Receive Date: 20211018
  Receipt Date: 20211020
  Transmission Date: 20220303
  Serious: Yes (Hospitalization)
  Sender: FDA-Public Use
  Company Number: None

PATIENT
  Age: 75 Year
  Sex: Male

DRUGS (3)
  1. METHOTREXATE SODIUM [Suspect]
     Active Substance: METHOTREXATE SODIUM
     Indication: Rheumatic disorder
     Dosage: 15 MG
     Route: 048
     Dates: start: 20210226, end: 20210517
  2. FOLIC ACID [Concomitant]
     Active Substance: FOLIC ACID
     Dosage: UNK
     Route: 048
     Dates: start: 20210226, end: 20210517
  3. PREDNISONE [Concomitant]
     Active Substance: PREDNISONE
     Route: 048

REACTIONS (1)
  - Squamous cell carcinoma of the parotid gland [Not Recovered/Not Resolved]

NARRATIVE: CASE EVENT DATE: 20210101
